FAERS Safety Report 19976359 (Version 1)
Quarter: 2021Q4

REPORT INFORMATION
  Report Type: Spontaneous
  Country: US (occurrence: US)
  Receive Date: 20211020
  Receipt Date: 20211020
  Transmission Date: 20220303
  Serious: No
  Sender: FDA-Public Use
  Company Number: US-ALLERGAN-2036686US

PATIENT
  Age: 14 Day
  Sex: Female
  Weight: 4 kg

DRUGS (1)
  1. ZENPEP [Suspect]
     Active Substance: PANCRELIPASE AMYLASE\PANCRELIPASE LIPASE\PANCRELIPASE PROTEASE
     Dosage: TITRATED DOSE AVERAGE 4-6 MICROSPHERES PER APPROXIMATELY 120 ML BOTTLE OR BREAST FEEDING
     Route: 048
     Dates: start: 20200828

REACTIONS (2)
  - Constipation [Not Recovered/Not Resolved]
  - Flatulence [Not Recovered/Not Resolved]

NARRATIVE: CASE EVENT DATE: 20200101
